FAERS Safety Report 8588348-0 (Version None)
Quarter: 2012Q3

REPORT INFORMATION
  Report Type: 
  Country: None (occurrence: None)
  Receive Date: 20120813
  Receipt Date: 20120801
  Transmission Date: 20120928
  Serious: Yes (Other)
  Sender: FDA-Public Use
  Company Number: GB-AMGEN-GBRSP2012022207

PATIENT
  Age: 75 Year
  Sex: Female
  Weight: 91 kg

DRUGS (6)
  1. FUROSEMIDE [Concomitant]
     Dosage: 40 MG, 1X/DAY
     Route: 048
  2. VOLTAREN [Concomitant]
     Dosage: 50 MG, AS NEEDED
     Route: 048
  3. ENBREL [Suspect]
     Indication: RHEUMATOID ARTHRITIS
     Dosage: 50 MG, UNK
     Dates: start: 20050816
  4. LOPERAMIDE [Concomitant]
     Dosage: 10 MG, UNK
     Route: 048
  5. FESOTERODINE [Concomitant]
     Dosage: 4 MG, UNK
     Route: 048
  6. VALSARTAN [Concomitant]
     Dosage: UNK

REACTIONS (2)
  - BREAST CANCER [None]
  - BREAST CANCER FEMALE [None]
